FAERS Safety Report 22392986 (Version 1)
Quarter: 2023Q2

REPORT INFORMATION
  Report Type: Spontaneous
  Country: DE (occurrence: DE)
  Receive Date: 20230601
  Receipt Date: 20230601
  Transmission Date: 20230722
  Serious: Yes (Hospitalization, Congenital Anomaly, Other)
  Sender: FDA-Public Use
  Company Number: DE-EMBRYOTOX-202209565

PATIENT
  Age: 0 Year
  Sex: Male

DRUGS (3)
  1. LEVETIRACETAM [Suspect]
     Active Substance: LEVETIRACETAM
     Indication: Epilepsy
     Dosage: 3000 [MG/D ]/ INITIAL 2X750MG DAILY, INCREASED TO 2X1500MG DAILY, 0. - 35.2. GESTATIONAL WEEK,  DURA
     Route: 064
     Dates: start: 20220203, end: 20221008
  2. AMOXICILLIN [Concomitant]
     Active Substance: AMOXICILLIN
     Indication: Infection prophylaxis
     Dosage: 2000 MILLIGRAM DAILY; 2000 [MG/D (2X1000) ], 15. - 16. GESTATIONAL WEEK
  3. LEVOTHYROXINE SODIUM [Concomitant]
     Active Substance: LEVOTHYROXINE SODIUM
     Indication: Hypothyroidism
     Dosage: 50 MICROGRAM DAILY; DURATION : 247 DAYS, 0. - 35.2. GESTATIONAL WEEK
     Dates: start: 20220203, end: 20221008

REACTIONS (6)
  - Pericardial effusion [Unknown]
  - Urethral atresia [Not Recovered/Not Resolved]
  - Vesicoureteric reflux [Not Recovered/Not Resolved]
  - Foetal megacystis [Recovered/Resolved]
  - Cardiac hypertrophy [Unknown]
  - Foetal exposure during pregnancy [Unknown]

NARRATIVE: CASE EVENT DATE: 20220203
